FAERS Safety Report 6629587-5 (Version None)
Quarter: 2010Q1

REPORT INFORMATION
  Report Type: 
  Country: None (occurrence: None)
  Receive Date: 20100311
  Receipt Date: 20100208
  Transmission Date: 20100710
  Serious: No
  Sender: FDA-Public Use
  Company Number: US-BAYER-201011922BCC

PATIENT
  Age: 86 Year
  Sex: Female
  Weight: 64 kg

DRUGS (9)
  1. ALEVE (CAPLET) [Suspect]
     Indication: ARTHRALGIA
     Dosage: UNIT DOSE: 220 MG
     Route: 048
     Dates: start: 20100207
  2. LOW DOSE ESTROGEN MEDICATION [Concomitant]
     Route: 065
  3. VITAMIN D [Concomitant]
     Route: 065
  4. VITAMIN-MINERAL COMPOUND TAB [Concomitant]
     Route: 065
  5. ASPIRIN [Concomitant]
     Route: 065
  6. UNKNOWN ANTACID [Concomitant]
     Route: 065
  7. LEVSIN [Concomitant]
     Route: 065
  8. UNKNOWN HIGH BLOOD PRESSURE MEDICATION [Concomitant]
     Route: 065
  9. UNKNOWN CHOLESTEROL [Concomitant]
     Route: 065

REACTIONS (3)
  - ABDOMINAL PAIN [None]
  - DIARRHOEA [None]
  - FLATULENCE [None]
